FAERS Safety Report 18472286 (Version 1)
Quarter: 2020Q4

REPORT INFORMATION
  Report Type: Spontaneous
  Country: TR (occurrence: TR)
  Receive Date: 20201106
  Receipt Date: 20201106
  Transmission Date: 20210114
  Serious: Yes (Other)
  Sender: FDA-Public Use
  Company Number: TR-CHEPLA-C20203271_01

PATIENT

DRUGS (3)
  1. GANSIKLOVIR [Suspect]
     Active Substance: GANCICLOVIR
     Indication: CYTOMEGALOVIRUS INFECTION
     Dosage: WHEN THE VIRAL LOAD REACHED 32,000 IU / ML, 164-DAY GCV TREATMENT WAS STARTED
  2. FOSKARNET [Suspect]
     Active Substance: FOSCARNET
     Indication: CYTOMEGALOVIRUS INFECTION
     Dosage: STARTED ON 17TH DAY OF THE TRANSPLANTATION
  3. VGCV [Suspect]
     Active Substance: VALGANCICLOVIR
     Indication: CYTOMEGALOVIRUS INFECTION

REACTIONS (2)
  - Graft versus host disease [Unknown]
  - Drug resistance [Unknown]
